FAERS Safety Report 20085928 (Version 1)
Quarter: 2021Q4

REPORT INFORMATION
  Report Type: Spontaneous
  Country: ES (occurrence: ES)
  Receive Date: 20211118
  Receipt Date: 20211118
  Transmission Date: 20220304
  Serious: Yes (Death, Hospitalization)
  Sender: FDA-Public Use
  Company Number: ES-Accord-244706

PATIENT
  Age: 87 Year
  Sex: Male
  Weight: 68.2 kg

DRUGS (8)
  1. GEMCITABINE HYDROCHLORIDE [Suspect]
     Active Substance: GEMCITABINE HYDROCHLORIDE
     Indication: Product used for unknown indication
     Dosage: 1000 MG/M2, EVERY 2 WEEKS
     Route: 042
     Dates: start: 20210708, end: 20210930
  2. OXALIPLATIN [Suspect]
     Active Substance: OXALIPLATIN
     Indication: Product used for unknown indication
     Dosage: 100 MG/M2, EVERY 2 WEEKS
     Route: 042
     Dates: start: 20210708, end: 20210722
  3. EPCORITAMAB [Suspect]
     Active Substance: EPCORITAMAB
     Indication: Product used for unknown indication
     Dosage: 0.16 MG, UNKNOWN
     Route: 058
     Dates: start: 20210708, end: 20210708
  4. EPCORITAMAB [Suspect]
     Active Substance: EPCORITAMAB
     Dosage: 0.8 MG, UNKNOWN
     Route: 058
     Dates: start: 20210715, end: 20210715
  5. EPCORITAMAB [Suspect]
     Active Substance: EPCORITAMAB
     Dosage: 48 MG, WEEKLY (1/W)
     Route: 058
     Dates: start: 20210722, end: 20211007
  6. ACETAMINOPHEN [Concomitant]
     Active Substance: ACETAMINOPHEN
     Indication: Product used for unknown indication
     Dosage: 1000 MG, UNKNOWN
     Route: 042
     Dates: start: 20211007, end: 20211007
  7. DEXCHLORPHENIRAMINE [Concomitant]
     Active Substance: DEXCHLORPHENIRAMINE
     Indication: Product used for unknown indication
     Dosage: 2 MG, UNKNOWN
     Route: 042
     Dates: start: 20211007, end: 20211007
  8. DEXAMETHASONE [Concomitant]
     Active Substance: DEXAMETHASONE
     Indication: Product used for unknown indication
     Dosage: UNK, UNKNOWN
     Route: 065
     Dates: start: 20210708, end: 20210930

REACTIONS (1)
  - Cytomegalovirus infection reactivation [Fatal]

NARRATIVE: CASE EVENT DATE: 20211013
